FAERS Safety Report 14782847 (Version 3)
Quarter: 2018Q2

REPORT INFORMATION
  Report Type: Spontaneous
  Country: JP (occurrence: JP)
  Receive Date: 20180420
  Receipt Date: 20180509
  Transmission Date: 20180711
  Serious: Yes (Death)
  Sender: FDA-Public Use
  Company Number: JP-BEH-2018089933

PATIENT
  Age: 84 Year
  Sex: Male
  Weight: 53 kg

DRUGS (4)
  1. KAYTWO N [Concomitant]
     Active Substance: MENATETRENONE
     Indication: PROCOAGULANT THERAPY
     Dosage: 10 MG, UNK
     Route: 042
     Dates: start: 20171225, end: 20171226
  2. KCENTRA [Suspect]
     Active Substance: COAGULATION FACTOR IX HUMAN\COAGULATION FACTOR VII HUMAN\COAGULATION FACTOR X HUMAN\PROTEIN C\PROTEIN S HUMAN\PROTHROMBIN
     Indication: SUBDURAL HAEMATOMA
     Dosage: 1500 IU, TOT
     Route: 042
     Dates: start: 20171225, end: 20171225
  3. WARFARIN [Concomitant]
     Active Substance: WARFARIN
     Indication: ANTICOAGULANT THERAPY
     Dosage: 1.5 MG, UNK
     Route: 048
     Dates: start: 20130313, end: 20171224
  4. KCENTRA [Suspect]
     Active Substance: COAGULATION FACTOR IX HUMAN\COAGULATION FACTOR VII HUMAN\COAGULATION FACTOR X HUMAN\PROTEIN C\PROTEIN S HUMAN\PROTHROMBIN
     Indication: SURGERY

REACTIONS (2)
  - Mesenteric artery thrombosis [Fatal]
  - Gastrointestinal necrosis [Fatal]

NARRATIVE: CASE EVENT DATE: 20180118
